FAERS Safety Report 24756873 (Version 1)
Quarter: 2024Q4

REPORT INFORMATION
  Report Type: Spontaneous
  Country: US (occurrence: US)
  Receive Date: 20241220
  Receipt Date: 20241220
  Transmission Date: 20250115
  Serious: No
  Sender: GLAXOSMITHKLINE
  Company Number: US-GSKCCFUS-Case-02170467_AE-119550

PATIENT
  Sex: Female

DRUGS (1)
  1. ARNUITY ELLIPTA [Suspect]
     Active Substance: FLUTICASONE FUROATE
     Indication: Lymphocytic oesophagitis
     Dosage: 200 MG
     Dates: start: 20241210

REACTIONS (2)
  - Product prescribing error [Unknown]
  - Product prescribing issue [Unknown]
